FAERS Safety Report 8821208 (Version 1)
Quarter: 2012Q4

REPORT INFORMATION
  Report Type: 
  Country: IN (occurrence: IN)
  Receive Date: 20121002
  Receipt Date: 20121002
  Transmission Date: 20130627
  Serious: Yes (Hospitalization, Other)
  Sender: FDA-Public Use
  Company Number: IN-FRI-1000038914

PATIENT
  Age: 32 Year
  Sex: Female

DRUGS (1)
  1. LEVOTHROID [Suspect]
     Dosage: 100 mcg

REACTIONS (6)
  - Hyperthyroidism [Recovered/Resolved]
  - Hypotonia [Recovered/Resolved]
  - Muscular weakness [Recovered/Resolved]
  - Hypokalaemia [Recovered/Resolved]
  - Blood creatine phosphokinase increased [Recovered/Resolved]
  - Sinus tachycardia [Recovered/Resolved]
